FAERS Safety Report 20983778 (Version 1)
Quarter: 2022Q2

REPORT INFORMATION
  Report Type: Spontaneous
  Country: JP (occurrence: JP)
  Receive Date: 20220621
  Receipt Date: 20220621
  Transmission Date: 20220721
  Serious: Yes (Other)
  Sender: FDA-Public Use
  Company Number: JP-SUN PHARMACEUTICAL INDUSTRIES LTD-2022RR-341051

PATIENT
  Age: 76 Year
  Sex: Male

DRUGS (3)
  1. LANSOPRAZOLE [Suspect]
     Active Substance: LANSOPRAZOLE
     Indication: Oesophageal ulcer haemorrhage
     Dosage: 15 MILLIGRAM, DAILY, FOR 1.5 MONTHS
     Route: 065
  2. ESOMEPRAZOLE [Suspect]
     Active Substance: ESOMEPRAZOLE
     Indication: Oesophageal ulcer haemorrhage
     Dosage: 20 MILLIGRAM, DAILY
     Route: 065
  3. RABEPRAZOLE [Suspect]
     Active Substance: RABEPRAZOLE
     Indication: Oesophageal ulcer haemorrhage
     Dosage: 10 MILLIGRAM, DAILY
     Route: 065

REACTIONS (4)
  - Duodenal polyp [Recovering/Resolving]
  - Disease recurrence [Unknown]
  - Hypergastrinaemia [Unknown]
  - Metaplasia [Unknown]
